FAERS Safety Report 9919290 (Version 2)
Quarter: 2014Q1

REPORT INFORMATION
  Report Type: Report from Study
  Country: HU (occurrence: HU)
  Receive Date: 20140224
  Receipt Date: 20140303
  Transmission Date: 20141002
  Serious: Yes (Hospitalization)
  Sender: FDA-Public Use
  Company Number: HU-JNJFOC-20140210659

PATIENT
  Age: 19 Year
  Sex: Female
  Weight: 56 kg

DRUGS (9)
  1. USTEKINUMAB [Suspect]
     Indication: CROHN^S DISEASE
     Route: 042
     Dates: start: 20130812, end: 20131014
  2. USTEKINUMAB [Suspect]
     Indication: CROHN^S DISEASE
     Route: 042
     Dates: start: 20130617
  3. BUDESONIDE [Concomitant]
     Route: 065
     Dates: start: 201303
  4. AZATHIOPRINE [Concomitant]
     Route: 065
     Dates: start: 201109
  5. MESALAZINE [Concomitant]
     Route: 065
     Dates: start: 201109
  6. MODULEN [Concomitant]
     Route: 065
  7. NEO-FERRO-FOLGAMMA [Concomitant]
     Route: 065
     Dates: start: 20130313
  8. NO-SPA [Concomitant]
     Route: 065
     Dates: start: 201308
  9. ALGOPYRIN [Concomitant]
     Route: 065
     Dates: start: 201308

REACTIONS (1)
  - Anaemia [Recovered/Resolved]
